FAERS Safety Report 23686471 (Version 2)
Quarter: 2024Q2

REPORT INFORMATION
  Report Type: Spontaneous
  Country: US (occurrence: US)
  Receive Date: 20240329
  Receipt Date: 20240404
  Transmission Date: 20240716
  Serious: Yes (Other)
  Sender: FDA-Public Use
  Company Number: None

PATIENT
  Age: 4 Year
  Sex: Male

DRUGS (4)
  1. IBUPROFEN [Suspect]
     Active Substance: IBUPROFEN
     Indication: Product used for unknown indication
     Dosage: UNK
     Route: 065
  2. IBUPROFEN [Suspect]
     Active Substance: IBUPROFEN
     Dosage: UNK (SECOND DOSE)
     Route: 065
  3. INDOMETHACIN [Suspect]
     Active Substance: INDOMETHACIN
     Indication: Allergy test
     Dosage: UNK
     Route: 065
  4. INDOMETHACIN [Suspect]
     Active Substance: INDOMETHACIN
     Dosage: UNK (SECOND DOSE)
     Route: 065

REACTIONS (2)
  - Cross sensitivity reaction [Unknown]
  - Angioedema [Unknown]
